FAERS Safety Report 13948485 (Version 2)
Quarter: 2017Q4

REPORT INFORMATION
  Report Type: Report from Study
  Country: CA (occurrence: CA)
  Receive Date: 20170908
  Receipt Date: 20171024
  Transmission Date: 20180320
  Serious: Yes (Hospitalization, Other)
  Sender: FDA-Public Use
  Company Number: PHHY2017CA132524

PATIENT
  Sex: Female

DRUGS (3)
  1. GILENYA [Suspect]
     Active Substance: FINGOLIMOD HYDROCHLORIDE
     Dosage: UNK UNK, QOD
     Route: 048
  2. GILENYA [Suspect]
     Active Substance: FINGOLIMOD HYDROCHLORIDE
     Indication: PRODUCT USED FOR UNKNOWN INDICATION
     Dosage: UNK
     Route: 048
     Dates: start: 20150121
  3. GILENYA [Suspect]
     Active Substance: FINGOLIMOD HYDROCHLORIDE
     Dosage: EVERY 7 DAYS
     Route: 048

REACTIONS (7)
  - Malaise [Recovering/Resolving]
  - White blood cell count decreased [Recovering/Resolving]
  - Dehydration [Recovering/Resolving]
  - Expanded disability status scale score increased [Unknown]
  - Weight decreased [Recovering/Resolving]
  - Prescribed underdose [Unknown]
  - Diarrhoea [Recovering/Resolving]
